FAERS Safety Report 24737885 (Version 1)
Quarter: 2024Q4

REPORT INFORMATION
  Report Type: Spontaneous
  Country: US (occurrence: US)
  Receive Date: 20241216
  Receipt Date: 20241216
  Transmission Date: 20250115
  Serious: No
  Sender: AUROBINDO
  Company Number: US-AUROBINDO-AUR-APL-2024-017334

PATIENT
  Age: 74 Year
  Sex: Male
  Weight: 111.13 kg

DRUGS (2)
  1. AMOXICILLIN [Suspect]
     Active Substance: AMOXICILLIN
     Indication: Tooth infection
     Dosage: UNK
     Route: 065
     Dates: start: 20240330, end: 20240331
  2. AMOXICILLIN [Suspect]
     Active Substance: AMOXICILLIN
     Dosage: 2000 MILLIGRAM
     Route: 048

REACTIONS (4)
  - Lip swelling [Unknown]
  - Rash [Unknown]
  - Swollen tongue [Unknown]
  - Product substitution issue [Unknown]
